FAERS Safety Report 17495529 (Version 1)
Quarter: 2020Q1

REPORT INFORMATION
  Report Type: Spontaneous
  Country: US (occurrence: US)
  Receive Date: 20200224
  Receipt Date: 20200224
  Transmission Date: 20200409
  Serious: Yes (Hospitalization)
  Sender: FDA-Public Use
  Company Number: None

PATIENT
  Age: 16 Year
  Sex: Male

DRUGS (7)
  1. CEPHALEXIN. [Concomitant]
     Active Substance: CEPHALEXIN
  2. LANSOPRAZOLE. [Concomitant]
     Active Substance: LANSOPRAZOLE
  3. CLOBETASOL [Concomitant]
     Active Substance: CLOBETASOL
  4. NORDITROPIN [Suspect]
     Active Substance: SOMATROPIN
     Indication: HYPOPITUITARISM
     Route: 058
     Dates: start: 20200201
  5. BUDESONIDE. [Concomitant]
     Active Substance: BUDESONIDE
  6. GABAPENTIN. [Concomitant]
     Active Substance: GABAPENTIN
  7. HYDROCOM/PAP [Concomitant]

REACTIONS (2)
  - Osteomyelitis [None]
  - Therapy cessation [None]

NARRATIVE: CASE EVENT DATE: 20200201
